FAERS Safety Report 12603305 (Version 1)
Quarter: 2016Q3

REPORT INFORMATION
  Report Type: Spontaneous
  Country: US (occurrence: US)
  Receive Date: 20160728
  Receipt Date: 20160728
  Transmission Date: 20161109
  Serious: No
  Sender: FDA-Public Use
  Company Number: US-CELGENEUS-USA-2016074057

PATIENT
  Age: 58 Year
  Sex: Male
  Weight: 127.12 kg

DRUGS (3)
  1. HYDROCODONE-ACETAMINOPHEN [Concomitant]
     Active Substance: ACETAMINOPHEN\HYDROCODONE
     Indication: PAIN
     Dosage: 7.5-500MG
     Route: 065
  2. REVLIMID [Suspect]
     Active Substance: LENALIDOMIDE
     Indication: PLASMA CELL MYELOMA
     Dosage: 25 MILLIGRAM
     Route: 048
     Dates: start: 20151222, end: 20160628
  3. DEXAMETHASONE. [Concomitant]
     Active Substance: DEXAMETHASONE
     Indication: ADJUVANT THERAPY
     Route: 065

REACTIONS (1)
  - Unevaluable event [Recovered/Resolved]

NARRATIVE: CASE EVENT DATE: 20160615
